FAERS Safety Report 17124222 (Version 1)
Quarter: 2019Q4

REPORT INFORMATION
  Report Type: Report from Study
  Country: IL (occurrence: IL)
  Receive Date: 20191206
  Receipt Date: 20191206
  Transmission Date: 20200122
  Serious: Yes (Other)
  Sender: FDA-Public Use
  Company Number: IL-IPSEN BIOPHARMACEUTICALS, INC.-2019-14134

PATIENT
  Sex: Female

DRUGS (16)
  1. LOSARTAN POTASSIUM AND HYDROCHLOROTHIAZIDE [Concomitant]
     Active Substance: HYDROCHLOROTHIAZIDE\LOSARTAN POTASSIUM
  2. PROCTO GLYVENOL CREAM [Concomitant]
  3. VENLAFAXINE HYDROCHLO [Concomitant]
     Dosage: STRENGTH -37.5 (UNITS UNSPECIFIED)
  4. SPIRONOLACTONE. [Concomitant]
     Active Substance: SPIRONOLACTONE
  5. CHOLECALCIFEROL [Concomitant]
     Active Substance: CHOLECALCIFEROL
  6. CALCIUM CARBONATE. [Concomitant]
     Active Substance: CALCIUM CARBONATE
  7. ZINC. [Concomitant]
     Active Substance: ZINC
  8. MULTIVITAMIN [Concomitant]
     Active Substance: VITAMINS
  9. IRON [Concomitant]
     Active Substance: IRON
  10. SOMATULINE AUTOGEL [Suspect]
     Active Substance: LANREOTIDE ACETATE
     Indication: ACROMEGALY
     Route: 058
     Dates: start: 20160424
  11. LOSARTAN POTASSIUM AND HYDROCHLOROTHIAZIDE [Concomitant]
     Active Substance: HYDROCHLOROTHIAZIDE\LOSARTAN POTASSIUM
  12. LANSOPRAZOLE. [Concomitant]
     Active Substance: LANSOPRAZOLE
  13. JANUET XR [Concomitant]
     Active Substance: METFORMIN HYDROCHLORIDE\SITAGLIPTIN PHOSPHATE
     Dosage: ONCE IN THE EVENING
  14. VABEN [Concomitant]
     Active Substance: OXAZEPAM
  15. ENCYPALMED [Concomitant]
  16. PROCTO GLYVENOL [Concomitant]

REACTIONS (3)
  - Cataract [Not Recovered/Not Resolved]
  - Macular hole [Not Recovered/Not Resolved]
  - Maculopathy [Recovering/Resolving]

NARRATIVE: CASE EVENT DATE: 2017
